FAERS Safety Report 7381936-9 (Version None)
Quarter: 2011Q1

REPORT INFORMATION
  Report Type: 
  Country: None (occurrence: None)
  Receive Date: 20110322
  Receipt Date: 20110310
  Transmission Date: 20110831
  Serious: Yes (Hospitalization)
  Sender: FDA-Public Use
  Company Number: 1000019119

PATIENT
  Age: 45 Year
  Sex: Male
  Weight: 66 kg

DRUGS (2)
  1. MILNACIPRAN (MILNACIPRAN HYDROCHLORIDE) (CAPSULES) [Suspect]
     Indication: DEPRESSION
     Dosage: 50 MG (25 MG, 2 IN 1 D), ORAL
     Route: 048
     Dates: start: 20101019, end: 20101019
  2. XANAX [Concomitant]

REACTIONS (2)
  - FALL [None]
  - SYNCOPE [None]
